FAERS Safety Report 10170810 (Version 3)
Quarter: 2014Q2

REPORT INFORMATION
  Report Type: Report from Study
  Country: US (occurrence: US)
  Receive Date: 20140514
  Receipt Date: 20140627
  Transmission Date: 20141212
  Serious: Yes (Other)
  Sender: FDA-Public Use
  Company Number: US-JNJFOC-20140205211

PATIENT
  Age: 66 Year
  Sex: Male
  Weight: 76.2 kg

DRUGS (9)
  1. REMICADE [Suspect]
     Indication: CROHN^S DISEASE
     Dosage: STARTED 10 YEARS AGO
     Route: 042
  2. REMICADE [Suspect]
     Indication: CROHN^S DISEASE
     Route: 042
     Dates: start: 20140120
  3. PRILOSEC [Concomitant]
     Indication: GASTRIC DISORDER
     Route: 048
  4. ATORVASTATIN [Concomitant]
     Indication: BLOOD CHOLESTEROL
     Route: 048
  5. TOPROL [Concomitant]
     Indication: BLOOD PRESSURE
     Route: 048
  6. MULTIVITAMINS [Concomitant]
     Route: 065
  7. COQ10 [Concomitant]
     Route: 065
  8. ASPIRIN [Concomitant]
     Route: 065
  9. FISH OIL [Concomitant]
     Route: 065

REACTIONS (4)
  - Cough [Recovered/Resolved]
  - Wheezing [Recovered/Resolved]
  - Throat irritation [Recovered/Resolved]
  - Dyspnoea [Recovered/Resolved]
